FAERS Safety Report 8365928-9 (Version None)
Quarter: 2012Q2

REPORT INFORMATION
  Report Type: 
  Country: None (occurrence: None)
  Receive Date: 20120515
  Receipt Date: 20120508
  Transmission Date: 20120825
  Serious: Yes (Life-Threatening, Hospitalization)
  Sender: FDA-Public Use
  Company Number: 2012-2098

PATIENT
  Age: 45 Year
  Sex: Female
  Weight: 80 kg

DRUGS (1)
  1. DYSPORT [Suspect]
     Indication: SKIN WRINKLING
     Dosage: 42 UNITS (42 UNITS, SINGLE CYCLE)
     Dates: start: 20111123, end: 20111123

REACTIONS (2)
  - GUILLAIN-BARRE SYNDROME [None]
  - APPARENT LIFE THREATENING EVENT [None]
